FAERS Safety Report 6804836-9 (Version None)
Quarter: 2010Q2

REPORT INFORMATION
  Report Type: 
  Country: None (occurrence: None)
  Receive Date: 20100628
  Receipt Date: 20070622
  Transmission Date: 20101027
  Serious: Yes (Other)
  Sender: FDA-Public Use
  Company Number: US-PFIZER INC-2007046553

PATIENT
  Sex: Female
  Weight: 79.4 kg

DRUGS (3)
  1. GEODON [Suspect]
     Route: 048
     Dates: start: 20070308, end: 20070530
  2. LITHIUM CARBONATE [Concomitant]
  3. LAMICTAL [Concomitant]
     Dates: start: 20070222

REACTIONS (1)
  - TARDIVE DYSKINESIA [None]
